FAERS Safety Report 17407946 (Version 4)
Quarter: 2021Q4

REPORT INFORMATION
  Report Type: Spontaneous
  Country: US (occurrence: US)
  Receive Date: 20200212
  Receipt Date: 20211110
  Transmission Date: 20220304
  Serious: No
  Sender: FDA-Public Use
  Company Number: US-PFIZER INC-2020058725

PATIENT
  Age: 72 Year
  Sex: Female

DRUGS (3)
  1. LYRICA [Suspect]
     Active Substance: PREGABALIN
     Indication: Paraesthesia
     Dosage: 150 MG, FOUR TIMES A DAY (SIG: TAKE 1 CAPSULE (150 MG TOTAL) BY MOUTH 4 (FOUR) TIMES DAILY)
     Route: 048
  2. LYRICA [Suspect]
     Active Substance: PREGABALIN
     Indication: Pain in extremity
     Dosage: 150 MG, THREE TIMES DAILY
     Route: 048
  3. LYRICA [Suspect]
     Active Substance: PREGABALIN
     Dosage: 100 MG, THREE TIMES DAILY
     Route: 048

REACTIONS (1)
  - Dysphonia [Unknown]
